FAERS Safety Report 5710367-X (Version None)
Quarter: 2008Q2

REPORT INFORMATION
  Report Type: 
  Country: None (occurrence: None)
  Receive Date: 20080418
  Receipt Date: 20080407
  Transmission Date: 20081010
  Serious: Yes (Other)
  Sender: FDA-Public Use
  Company Number: US-PFIZER INC-2008031854

PATIENT
  Sex: Female

DRUGS (2)
  1. LYRICA [Suspect]
  2. AMITRIPTYLINE HCL [Interacting]

REACTIONS (3)
  - DRUG INTERACTION [None]
  - HEAD INJURY [None]
  - LOSS OF CONSCIOUSNESS [None]
